FAERS Safety Report 8104639-1 (Version None)
Quarter: 2012Q1

REPORT INFORMATION
  Report Type: 
  Country: None (occurrence: None)
  Receive Date: 20120130
  Receipt Date: 20120125
  Transmission Date: 20120608
  Serious: Yes (Other)
  Sender: FDA-Public Use
  Company Number: PHHY2012AU006695

PATIENT
  Sex: Male

DRUGS (1)
  1. ZOLEDRONOC ACID [Suspect]
     Indication: OSTEOPOROSIS
     Dosage: 5 MG, UNK
     Route: 042
     Dates: start: 20120123

REACTIONS (6)
  - FEELING ABNORMAL [None]
  - LOSS OF CONSCIOUSNESS [None]
  - FALL [None]
  - HEADACHE [None]
  - BALANCE DISORDER [None]
  - CHILLS [None]
